FAERS Safety Report 25994747 (Version 1)
Quarter: 2025Q4

REPORT INFORMATION
  Report Type: Spontaneous
  Country: US (occurrence: US)
  Receive Date: 20251104
  Receipt Date: 20251104
  Transmission Date: 20260119
  Serious: No
  Sender: Onesource Specialty Pharma
  Company Number: US-STRIDES ARCOLAB LIMITED-2025OS000655

PATIENT
  Age: 57 Year
  Sex: Male

DRUGS (22)
  1. BUPIVACAINE [Suspect]
     Active Substance: BUPIVACAINE
     Indication: Cancer pain
     Dosage: 6.4 MILLIGRAM, QD
     Route: 037
  2. BUPIVACAINE [Suspect]
     Active Substance: BUPIVACAINE
     Indication: Back pain
  3. BUPIVACAINE [Suspect]
     Active Substance: BUPIVACAINE
     Indication: Cancer pain
     Dosage: UNK
     Route: 061
  4. BUPIVACAINE [Suspect]
     Active Substance: BUPIVACAINE
     Indication: Back pain
  5. CYCLOBENZAPRINE [Suspect]
     Active Substance: CYCLOBENZAPRINE
     Indication: Cancer pain
     Dosage: UNK
     Route: 061
  6. CYCLOBENZAPRINE [Suspect]
     Active Substance: CYCLOBENZAPRINE
     Indication: Back pain
  7. GABAPENTIN [Suspect]
     Active Substance: GABAPENTIN
     Indication: Cancer pain
     Dosage: UNK
     Route: 061
  8. GABAPENTIN [Suspect]
     Active Substance: GABAPENTIN
     Indication: Back pain
  9. IMIPRAMINE [Suspect]
     Active Substance: IMIPRAMINE
     Indication: Cancer pain
     Dosage: UNK
     Route: 061
  10. IMIPRAMINE [Suspect]
     Active Substance: IMIPRAMINE
     Indication: Back pain
  11. NIFEDIPINE [Suspect]
     Active Substance: NIFEDIPINE
     Indication: Cancer pain
     Dosage: UNK
     Route: 061
  12. NIFEDIPINE [Suspect]
     Active Substance: NIFEDIPINE
     Indication: Back pain
  13. FENTANYL [Suspect]
     Active Substance: FENTANYL
     Indication: Cancer pain
     Dosage: 7.5 MICROGRAM, QD
     Route: 037
  14. FENTANYL [Suspect]
     Active Substance: FENTANYL
     Indication: Back pain
  15. KETAMINE [Concomitant]
     Active Substance: KETAMINE
     Indication: Cancer pain
     Dosage: UNK
     Route: 061
  16. KETAMINE [Concomitant]
     Active Substance: KETAMINE
     Indication: Back pain
  17. AMITRIPTYLINE [Concomitant]
     Active Substance: AMITRIPTYLINE
     Indication: Insomnia
     Dosage: 25 MILLIGRAM,AT BEDTIME
     Route: 048
  18. AMITRIPTYLINE [Concomitant]
     Active Substance: AMITRIPTYLINE
     Indication: Neuralgia
  19. BUPROPION [Concomitant]
     Active Substance: BUPROPION
     Indication: Affective disorder
     Dosage: 200 MILLIGRAM, BID
     Route: 048
  20. DULOXETINE [Concomitant]
     Active Substance: DULOXETINE
     Indication: Intervertebral disc degeneration
     Dosage: 60 MILLIGRAM, BID
     Route: 048
  21. PREGABALIN [Concomitant]
     Active Substance: PREGABALIN
     Indication: Failed back surgery syndrome
     Dosage: 150 MILLIGRAM, BID
     Route: 048
  22. TOPIRAMATE [Concomitant]
     Active Substance: TOPIRAMATE
     Indication: Failed back surgery syndrome
     Dosage: 200 MILLIGRAM, BID
     Route: 048

REACTIONS (2)
  - Therapy non-responder [Unknown]
  - Off label use [Unknown]
